FAERS Safety Report 7939182-3 (Version None)
Quarter: 2011Q4

REPORT INFORMATION
  Report Type: 
  Country: None (occurrence: None)
  Receive Date: 20111124
  Receipt Date: 20111117
  Transmission Date: 20120403
  Serious: Yes (Hospitalization, Other)
  Sender: FDA-Public Use
  Company Number: US-BRISTOL-MYERS SQUIBB COMPANY-15968688

PATIENT
  Age: 60 Year
  Sex: Male
  Weight: 74 kg

DRUGS (2)
  1. VIDEX [Suspect]
     Indication: HIV INFECTION
     Route: 048
     Dates: start: 20011201, end: 20050101
  2. TRUVADA [Concomitant]
     Dates: start: 20060801

REACTIONS (4)
  - PORTAL VEIN THROMBOSIS [None]
  - PORTAL HYPERTENSION [None]
  - VARICES OESOPHAGEAL [None]
  - SPLENIC VEIN THROMBOSIS [None]
